FAERS Safety Report 15002210 (Version 3)
Quarter: 2018Q3

REPORT INFORMATION
  Report Type: Spontaneous
  Country: HU (occurrence: HU)
  Receive Date: 20180612
  Receipt Date: 20180702
  Transmission Date: 20181010
  Serious: Yes (Hospitalization, Other)
  Sender: FDA-Public Use
  Company Number: HU-PFIZER INC-2018232754

PATIENT
  Age: 72 Year
  Sex: Male
  Weight: 85 kg

DRUGS (13)
  1. CARVEDILOL. [Suspect]
     Active Substance: CARVEDILOL
     Dosage: 25 MG, BID (50 MG, 1X/DAY)
  2. CARVEDILOL. [Suspect]
     Active Substance: CARVEDILOL
     Dosage: 12.5 MG, BID (25 MG, 1X/DAY)
  3. FUROSEMIDE. [Suspect]
     Active Substance: FUROSEMIDE
     Dosage: 40 MG, 1X/DAY
  4. CARVEDILOL. [Suspect]
     Active Substance: CARVEDILOL
     Dosage: 18.75 MG, BID (37.5 MG, 1X/DAY)
  5. METOPROLOL. [Suspect]
     Active Substance: METOPROLOL
     Dosage: UNK
  6. ATORVASTATIN CALCIUM. [Suspect]
     Active Substance: ATORVASTATIN CALCIUM
     Dosage: UNK
  7. INDAPAMIDE. [Suspect]
     Active Substance: INDAPAMIDE
     Dosage: UNK
  8. CARVEDILOL. [Suspect]
     Active Substance: CARVEDILOL
     Dosage: 3.25 MG, BID
  9. CARVEDILOL. [Suspect]
     Active Substance: CARVEDILOL
     Dosage: 6.25 MG, BID (12.5 MG, 1X/DAY)
  10. PERINDOPRIL [Suspect]
     Active Substance: PERINDOPRIL
     Dosage: 5 MG, UNK
  11. PERINDOPRIL [Suspect]
     Active Substance: PERINDOPRIL
     Dosage: 2.5 MG, UNK
  12. ACETYLSALICYLIC ACID [Suspect]
     Active Substance: ASPIRIN
     Dosage: 100 MG, UNK
  13. POTASSIUM [Concomitant]
     Active Substance: POTASSIUM
     Dosage: 600 MG, UNK

REACTIONS (17)
  - Dyspnoea [Recovered/Resolved]
  - Cardiovascular insufficiency [Recovered/Resolved]
  - Stress [Recovered/Resolved]
  - Rales [Unknown]
  - Fatigue [Recovered/Resolved]
  - Weight increased [Unknown]
  - Restlessness [Recovered/Resolved]
  - Sinus tachycardia [Unknown]
  - Oedema peripheral [Recovered/Resolved]
  - Hydrothorax [Unknown]
  - Renal impairment [Recovered/Resolved]
  - Asthenia [Recovered/Resolved]
  - Feeling jittery [Recovered/Resolved]
  - Nocturia [Recovering/Resolving]
  - Obesity [Unknown]
  - Diastolic dysfunction [Unknown]
  - Tachypnoea [Recovered/Resolved]

NARRATIVE: CASE EVENT DATE: 201409
